FAERS Safety Report 17451198 (Version 1)
Quarter: 2020Q1

REPORT INFORMATION
  Report Type: Spontaneous
  Country: US (occurrence: US)
  Receive Date: 20200224
  Receipt Date: 20200224
  Transmission Date: 20200409
  Serious: No
  Sender: FDA-Public Use
  Company Number: US-LNK INTERNATIONAL, INC.-2080821

PATIENT
  Age: 9 Year
  Sex: Female

DRUGS (1)
  1. ACETAMINOPHEN 160MG CHEWABLE BUBBLE GUM FLAVOR TABLETS [Suspect]
     Active Substance: ACETAMINOPHEN
     Indication: PYREXIA

REACTIONS (1)
  - Nausea [None]
